FAERS Safety Report 13662235 (Version 1)
Quarter: 2017Q2

REPORT INFORMATION
  Report Type: Report from Study
  Country: None (occurrence: AR)
  Receive Date: 20170616
  Receipt Date: 20170616
  Transmission Date: 20170830
  Serious: Yes (Hospitalization)
  Sender: FDA-Public Use
  Company Number: AR-ABBVIE-17P-007-2009877-00

PATIENT
  Age: 44 Year
  Sex: Female

DRUGS (1)
  1. ZEMPLAR [Suspect]
     Active Substance: PARICALCITOL
     Indication: SECONDARY HYPERTHYROIDISM
     Route: 048
     Dates: start: 20150201

REACTIONS (4)
  - Conjunctivitis [Recovered/Resolved]
  - Strangulated umbilical hernia [Recovered/Resolved]
  - Pain [Unknown]
  - Umbilical hernia [Unknown]

NARRATIVE: CASE EVENT DATE: 201606
